FAERS Safety Report 25190536 (Version 2)
Quarter: 2025Q3

REPORT INFORMATION
  Report Type: Spontaneous
  Country: US (occurrence: US)
  Receive Date: 20250411
  Receipt Date: 20250707
  Transmission Date: 20251021
  Serious: Yes (Other)
  Sender: TEVA
  Company Number: US-TEVA-VS-3298251

PATIENT
  Age: 66 Year
  Sex: Female

DRUGS (1)
  1. AJOVY [Suspect]
     Active Substance: FREMANEZUMAB-VFRM
     Indication: Migraine with aura
     Dosage: FORM STRENGTH: 225 MG/1.5 ML
     Route: 065

REACTIONS (3)
  - Migraine [Unknown]
  - Product use issue [Unknown]
  - Product use issue [Unknown]
